FAERS Safety Report 4468028-3 (Version None)
Quarter: 2004Q4

REPORT INFORMATION
  Report Type: 
  Country: None (occurrence: None)
  Receive Date: 20041004
  Receipt Date: 20041004
  Transmission Date: 20050328
  Serious: Yes (Other)
  Sender: FDA-Public Use
  Company Number: None

PATIENT
  Age: 82 Year
  Sex: Male
  Weight: 70.3 kg

DRUGS (11)
  1. OXYBUTYNIN CHLORIDE [Suspect]
  2. AZITHROMYCIN [Concomitant]
  3. DM 10/GUAIFENESIN [Concomitant]
  4. IPRATROPIUM BROMIDE [Concomitant]
  5. ALBUTEROL [Concomitant]
  6. DOCUSATE NA [Concomitant]
  7. FOSINOPRIL [Concomitant]
  8. NAPROXEN [Concomitant]
  9. ADALAT CC [Concomitant]
  10. GABAPENTIN [Concomitant]
  11. LORATADINE [Concomitant]

REACTIONS (1)
  - DRY MOUTH [None]
